FAERS Safety Report 7986876-X (Version None)
Quarter: 2011Q4

REPORT INFORMATION
  Report Type: 
  Country: None (occurrence: None)
  Receive Date: 20111216
  Receipt Date: 20111214
  Transmission Date: 20120403
  Serious: Yes (Other)
  Sender: FDA-Public Use
  Company Number: US-BAYER-2011-120208

PATIENT
  Age: 31 Year
  Sex: Female
  Weight: 77.098 kg

DRUGS (4)
  1. ULTRAVIST 150 [Suspect]
     Indication: PELVIC PAIN
  2. MEDROL [Concomitant]
     Indication: PREMEDICATION
     Dosage: 8 MG, 12 HOURS BEFORE
     Dates: start: 20111212
  3. MEDROL [Concomitant]
     Dosage: 2 HOURS AFTER
     Dates: start: 20111213
  4. ULTRAVIST 150 [Suspect]
     Indication: COMPUTERISED TOMOGRAM ABDOMEN
     Dosage: 100 ML, ONCE
     Route: 042
     Dates: start: 20111213, end: 20111213

REACTIONS (4)
  - RASH MACULAR [None]
  - OXYGEN SATURATION DECREASED [None]
  - HYPERVENTILATION [None]
  - HYPERSENSITIVITY [None]
